FAERS Safety Report 5803570-1 (Version None)
Quarter: 2008Q3

REPORT INFORMATION
  Report Type: 
  Country: None (occurrence: None)
  Receive Date: 20080703
  Receipt Date: 20080623
  Transmission Date: 20090109
  Serious: Yes (Hospitalization)
  Sender: FDA-Public Use
  Company Number: 2008BI014193

PATIENT
  Age: 38 Year
  Sex: Female

DRUGS (2)
  1. TYSABRI [Suspect]
     Indication: PROGRESSIVE RELAPSING MULTIPLE SCLEROSIS
     Dosage: 300 MG;QM;IV
     Route: 042
     Dates: start: 20071201, end: 20080401
  2. REBIF [Concomitant]

REACTIONS (26)
  - ACTIVITIES OF DAILY LIVING IMPAIRED [None]
  - BALANCE DISORDER [None]
  - BLOOD BRAIN BARRIER DEFECT [None]
  - CENTRAL NERVOUS SYSTEM INFLAMMATION [None]
  - CEREBRAL TOXOPLASMOSIS [None]
  - COGNITIVE DISORDER [None]
  - COMA [None]
  - DRUG INEFFECTIVE [None]
  - DRUG SPECIFIC ANTIBODY PRESENT [None]
  - EATING DISORDER [None]
  - FATIGUE [None]
  - FEELING COLD [None]
  - GAIT DISTURBANCE [None]
  - HYPERTONIA [None]
  - INFUSION RELATED REACTION [None]
  - LEUKOPENIA [None]
  - MACROPHAGES INCREASED [None]
  - MALAISE [None]
  - MOTOR DYSFUNCTION [None]
  - MULTIPLE SCLEROSIS RELAPSE [None]
  - PROGRESSIVE MULTIPLE SCLEROSIS [None]
  - QUADRIPLEGIA [None]
  - RESPIRATORY DISORDER [None]
  - SPEECH DISORDER [None]
  - THERAPEUTIC RESPONSE DECREASED [None]
  - WHEELCHAIR USER [None]
